FAERS Safety Report 6031798-7 (Version None)
Quarter: 2009Q1

REPORT INFORMATION
  Report Type: 
  Country: None (occurrence: None)
  Receive Date: 20090108
  Receipt Date: 20090106
  Transmission Date: 20090719
  Serious: Yes (Life-Threatening)
  Sender: FDA-Public Use
  Company Number: BE-JNJFOC-20090100370

PATIENT
  Sex: Male
  Weight: 120 kg

DRUGS (2)
  1. RISPERDAL CONSTA [Suspect]
     Indication: DRUG USE FOR UNKNOWN INDICATION
     Dosage: ON 24, 25,26,27,28 DECEMBER.
     Route: 030
  2. TEMESTA [Concomitant]
     Route: 065

REACTIONS (6)
  - CARDIAC FAILURE [None]
  - COMA [None]
  - FATIGUE [None]
  - INAPPROPRIATE SCHEDULE OF DRUG ADMINISTRATION [None]
  - INCORRECT ROUTE OF DRUG ADMINISTRATION [None]
  - SYNCOPE [None]
